FAERS Safety Report 6228100-4 (Version None)
Quarter: 2009Q2

REPORT INFORMATION
  Report Type: 
  Country: None (occurrence: None)
  Receive Date: 20090612
  Receipt Date: 20090430
  Transmission Date: 20091009
  Serious: No
  Sender: FDA-Public Use
  Company Number: US-BAYER-200919774NA

PATIENT
  Sex: Male

DRUGS (2)
  1. PRECOSE [Suspect]
     Indication: DRUG USE FOR UNKNOWN INDICATION
     Dosage: AS USED: 200/100 MG
  2. PRECOSE [Suspect]
     Dosage: AS USED: 200/150/100 MG
     Dates: start: 20090429

REACTIONS (3)
  - DIABETES MELLITUS INADEQUATE CONTROL [None]
  - FLATULENCE [None]
  - NO ADVERSE EVENT [None]
